FAERS Safety Report 8549908-6 (Version None)
Quarter: 2012Q3

REPORT INFORMATION
  Report Type: 
  Country: None (occurrence: None)
  Receive Date: 20120730
  Receipt Date: 20120501
  Transmission Date: 20120928
  Serious: No
  Sender: FDA-Public Use
  Company Number: US-GLAXOSMITHKLINE-A0975959A

PATIENT
  Sex: Female

DRUGS (5)
  1. SUMATRIPTAN [Suspect]
     Indication: MIGRAINE
     Route: 065
     Dates: start: 19990101
  2. TOPAMAX [Concomitant]
  3. IMITREX [Suspect]
     Indication: MIGRAINE
     Dosage: 100MG SEE DOSAGE TEXT
     Route: 048
  4. NEURONTIN [Concomitant]
  5. INDERAL [Concomitant]

REACTIONS (3)
  - DIZZINESS [None]
  - VOMITING [None]
  - OVERDOSE [None]
